FAERS Safety Report 9192600 (Version 1)
Quarter: 2013Q1

REPORT INFORMATION
  Report Type: Spontaneous
  Country: US (occurrence: None)
  Receive Date: 20130326
  Receipt Date: 20130326
  Transmission Date: 20140127
  Serious: No
  Sender: FDA-Public Use
  Company Number: None

PATIENT
  Age: 40 Year
  Sex: Male

DRUGS (9)
  1. EGRIFTA [Suspect]
     Indication: HIV INFECTION
     Route: 058
     Dates: start: 20121107, end: 20130315
  2. EGRIFTA [Suspect]
     Indication: LIPODYSTROPHY ACQUIRED
     Route: 058
     Dates: start: 20121107, end: 20130315
  3. NORVIR [Concomitant]
  4. REYATAZ [Concomitant]
  5. TRUVADA [Concomitant]
  6. LYRICA [Concomitant]
  7. WELLBUTRIN [Concomitant]
  8. REQUIP [Concomitant]
  9. FERROUS SULFATE [Concomitant]

REACTIONS (2)
  - Hypoaesthesia [None]
  - Hypoaesthesia [None]
